FAERS Safety Report 4314353-6 (Version None)
Quarter: 2004Q1

REPORT INFORMATION
  Report Type: 
  Country: None (occurrence: None)
  Receive Date: 20040308
  Receipt Date: 20040224
  Transmission Date: 20041129
  Serious: Yes (Death, Other)
  Sender: FDA-Public Use
  Company Number: USA-2003-0005721

PATIENT
  Age: 66 Year
  Sex: Male
  Weight: 56.7 kg

DRUGS (5)
  1. OXYCONTIN [Suspect]
     Indication: PAIN
     Dosage: 80 MG
  2. HYDROCODONE BITARTRATE [Suspect]
  3. OXYMORPHONE HYDROCHLORIDE [Suspect]
  4. METHADONE HCL [Suspect]
  5. NICOTINE [Suspect]

REACTIONS (16)
  - AGE INDETERMINATE MYOCARDIAL INFARCTION [None]
  - AORTIC ATHEROSCLEROSIS [None]
  - ATHEROSCLEROSIS [None]
  - CACHEXIA [None]
  - CARDIOMEGALY [None]
  - CHRONIC OBSTRUCTIVE AIRWAYS DISEASE [None]
  - CORONARY ARTERY STENOSIS [None]
  - DRUG ABUSER [None]
  - DRUG DEPENDENCE [None]
  - DRUG TOLERANCE [None]
  - HYPERTENSIVE HEART DISEASE [None]
  - LOBAR PNEUMONIA [None]
  - NEPHROSCLEROSIS [None]
  - OFF LABEL USE [None]
  - OVERDOSE [None]
  - PNEUMOCONIOSIS [None]
